FAERS Safety Report 5583932-0 (Version None)
Quarter: 2008Q1

REPORT INFORMATION
  Report Type: 
  Country: None (occurrence: None)
  Receive Date: 20080103
  Receipt Date: 20080103
  Transmission Date: 20080703
  Serious: No
  Sender: FDA-Public Use
  Company Number: None

PATIENT
  Sex: Female
  Weight: 65.9 kg

DRUGS (3)
  1. TEMOZOLOMIDE [Suspect]
     Dosage: 6345 MG
  2. BACTRIM DS [Concomitant]
  3. DILANTIN [Concomitant]

REACTIONS (1)
  - THROMBOCYTOPENIA [None]
